FAERS Safety Report 22066847 (Version 2)
Quarter: 2025Q1

REPORT INFORMATION
  Report Type: Spontaneous
  Country: JP (occurrence: JP)
  Receive Date: 20230306
  Receipt Date: 20250207
  Transmission Date: 20250408
  Serious: Yes (Other)
  Sender: ROCHE
  Company Number: JP-ROCHE-3297825

PATIENT
  Age: 7 Decade
  Sex: Male

DRUGS (3)
  1. ATEZOLIZUMAB [Suspect]
     Active Substance: ATEZOLIZUMAB
     Indication: Hepatocellular carcinoma
     Route: 065
  2. BEVACIZUMAB [Suspect]
     Active Substance: BEVACIZUMAB
     Indication: Hepatocellular carcinoma
     Route: 065
  3. LENVATINIB [Concomitant]
     Active Substance: LENVATINIB

REACTIONS (2)
  - Immune-mediated hypophysitis [Unknown]
  - Adrenal insufficiency [Unknown]
